FAERS Safety Report 26028406 (Version 4)
Quarter: 2025Q4

REPORT INFORMATION
  Report Type: Report from Study
  Country: EU (occurrence: EU)
  Receive Date: 20251111
  Receipt Date: 20251127
  Transmission Date: 20260118
  Serious: Yes (Life-Threatening, Hospitalization, Other)
  Sender: SERVIER
  Company Number: EU-SERVIER-S25013959

PATIENT

DRUGS (1)
  1. VORASIDENIB [Suspect]
     Active Substance: VORASIDENIB
     Indication: Malignant oligodendroglioma
     Dosage: 40 MG, UNK
     Route: 048
     Dates: start: 20250102, end: 20250923

REACTIONS (13)
  - Liver disorder [Recovering/Resolving]
  - Alanine aminotransferase increased [Recovered/Resolved with Sequelae]
  - Aspartate aminotransferase increased [Recovered/Resolved with Sequelae]
  - Blood alkaline phosphatase increased [Recovered/Resolved with Sequelae]
  - Gamma-glutamyltransferase increased [Recovered/Resolved with Sequelae]
  - Fatigue [Unknown]
  - Blood bilirubin increased [Recovering/Resolving]
  - Ocular icterus [Unknown]
  - Gallbladder enlargement [Unknown]
  - Prothrombin time prolonged [Recovering/Resolving]
  - Nausea [Unknown]
  - Headache [Unknown]
  - Myalgia [Unknown]

NARRATIVE: CASE EVENT DATE: 20250101
